FAERS Safety Report 7355732-2 (Version None)
Quarter: 2011Q1

REPORT INFORMATION
  Report Type: 
  Country: None (occurrence: None)
  Receive Date: 20110316
  Receipt Date: 20110303
  Transmission Date: 20110831
  Serious: Yes (Other)
  Sender: FDA-Public Use
  Company Number: JP-JNJFOC-20101208150

PATIENT
  Sex: Female
  Weight: 41 kg

DRUGS (9)
  1. MAGLAX [Concomitant]
     Indication: PROPHYLAXIS
     Route: 048
  2. SEROQUEL [Concomitant]
     Indication: DELIRIUM
     Route: 048
  3. DOXORUBICIN HCL [Suspect]
     Route: 042
  4. IODINE [Concomitant]
     Indication: PROPHYLAXIS
     Route: 049
  5. SILECE [Concomitant]
     Indication: DELIRIUM
     Route: 048
  6. DOXORUBICIN HCL [Suspect]
     Indication: OVARIAN CANCER RECURRENT
     Route: 042
  7. DOXORUBICIN HCL [Suspect]
     Route: 042
  8. DOXORUBICIN HCL [Suspect]
     Route: 042
  9. MAGLAX [Concomitant]
     Indication: CONSTIPATION
     Route: 048

REACTIONS (2)
  - INTERSTITIAL LUNG DISEASE [None]
  - ANAEMIA [None]
